FAERS Safety Report 5446955-8 (Version None)
Quarter: 2007Q3

REPORT INFORMATION
  Report Type: 
  Country: None (occurrence: None)
  Receive Date: 20070907
  Receipt Date: 20070831
  Transmission Date: 20080115
  Serious: Yes (Hospitalization)
  Sender: FDA-Public Use
  Company Number: US-GENENTECH-247279

PATIENT
  Sex: Male
  Weight: 86 kg

DRUGS (9)
  1. ERLOTINIB [Suspect]
     Indication: COLORECTAL CANCER
     Dosage: 75 MG, QD
     Route: 048
     Dates: start: 20070130
  2. BEVACIZUMAB [Suspect]
     Indication: COLORECTAL CANCER
     Dosage: 451 MG, Q2W
     Route: 042
     Dates: start: 20070130
  3. EVEROLIMUS [Concomitant]
     Indication: COLORECTAL CANCER
     Dosage: 5 MG, QD
     Route: 048
  4. DITROPAN [Concomitant]
     Indication: DRUG USE FOR UNKNOWN INDICATION
     Dosage: UNK, UNKNOWN
     Route: 065
  5. PRILOSEC [Concomitant]
     Indication: DRUG USE FOR UNKNOWN INDICATION
     Dosage: 40 MG, QD
  6. NORVASC [Concomitant]
     Indication: DRUG USE FOR UNKNOWN INDICATION
     Dosage: 10 MG, QD
     Route: 065
  7. AUGMENTIN '125' [Concomitant]
     Dosage: 500 MG, BID
     Route: 065
     Dates: start: 20070202
  8. DEXAMETHASONE 0.5MG TAB [Concomitant]
     Dosage: 4 MG, QD
     Route: 065
     Dates: start: 20070213
  9. DIOVAN [Concomitant]
     Indication: DRUG USE FOR UNKNOWN INDICATION
     Dosage: 80 MG, QD
     Route: 065
     Dates: start: 20070213

REACTIONS (3)
  - ABDOMINAL PAIN [None]
  - CHEST PAIN [None]
  - ENTEROVESICAL FISTULA [None]
